FAERS Safety Report 18850597 (Version 1)
Quarter: 2021Q1

REPORT INFORMATION
  Report Type: Spontaneous
  Country: FR (occurrence: FR)
  Receive Date: 20210205
  Receipt Date: 20210205
  Transmission Date: 20210420
  Serious: Yes (Hospitalization)
  Sender: FDA-Public Use
  Company Number: FR-TEVA-2021-FR-1875976

PATIENT
  Age: 13 Year
  Sex: Female
  Weight: 83 kg

DRUGS (4)
  1. IBUPROFENE [Suspect]
     Active Substance: IBUPROFEN
     Route: 048
     Dates: start: 20201227, end: 20201227
  2. SPASFON LYOC 80 MG, LYOPHILISAT ORAL [Suspect]
     Active Substance: PHLOROGLUCINOL
     Route: 048
     Dates: start: 20201227, end: 20201227
  3. DOLIPRANE [Suspect]
     Active Substance: ACETAMINOPHEN
     Route: 048
     Dates: start: 20201227, end: 20201227
  4. PARACETAMOL [Suspect]
     Active Substance: ACETAMINOPHEN
     Route: 048
     Dates: start: 20201227, end: 20201227

REACTIONS (2)
  - Toxicity to various agents [Recovered/Resolved]
  - Suicide attempt [Recovered/Resolved]

NARRATIVE: CASE EVENT DATE: 20201227
